FAERS Safety Report 8537061-4 (Version None)
Quarter: 2012Q3

REPORT INFORMATION
  Report Type: 
  Country: None (occurrence: None)
  Receive Date: 20120725
  Receipt Date: 20120718
  Transmission Date: 20120928
  Serious: Yes (Hospitalization)
  Sender: FDA-Public Use
  Company Number: US-BAYER-2012-042693

PATIENT
  Age: 29 Year
  Sex: Female
  Weight: 79.365 kg

DRUGS (6)
  1. YAZ [Suspect]
     Indication: CONTRACEPTION
     Dosage: UNK
     Dates: start: 20081115, end: 20090101
  2. DROSPIRENONE AND ETHINYL ESTRADIOL [Suspect]
     Indication: CONTRACEPTION
     Dosage: UNK
     Dates: start: 20100707, end: 20100901
  3. CIPROFLOXACIN HCL [Concomitant]
  4. ULTRAM [Concomitant]
  5. PERCOCET [Concomitant]
  6. YAZ [Suspect]
     Dosage: UNK
     Dates: start: 20100901

REACTIONS (6)
  - NAUSEA [None]
  - ABDOMINAL PAIN [None]
  - CHOLECYSTITIS ACUTE [None]
  - VOMITING [None]
  - CHOLELITHIASIS [None]
  - FLANK PAIN [None]
